FAERS Safety Report 7833130-2 (Version None)
Quarter: 2011Q4

REPORT INFORMATION
  Report Type: 
  Country: None (occurrence: None)
  Receive Date: 20111024
  Receipt Date: 20111014
  Transmission Date: 20120403
  Serious: Yes (Other)
  Sender: FDA-Public Use
  Company Number: BR-JNJFOC-20111007142

PATIENT
  Sex: Male

DRUGS (3)
  1. ACETAMINOPHEN W/ CODEINE [Suspect]
     Indication: ANALGESIC THERAPY
     Route: 048
     Dates: start: 20110101
  2. LISADOR [Suspect]
     Indication: ANALGESIC THERAPY
     Route: 065
     Dates: start: 20110101
  3. COUMARIN, TROXERUTIN [Suspect]
     Indication: CARDIOVASCULAR DISORDER
     Route: 065
     Dates: start: 20110101

REACTIONS (2)
  - YELLOW SKIN [None]
  - OCULAR ICTERUS [None]
